FAERS Safety Report 21981257 (Version 1)
Quarter: 2023Q1

REPORT INFORMATION
  Report Type: Spontaneous
  Country: US (occurrence: None)
  Receive Date: 20230211
  Receipt Date: 20230211
  Transmission Date: 20230418
  Serious: No
  Sender: FDA-Public Use
  Company Number: 2023A028068

PATIENT

DRUGS (4)
  1. SYMBICORT [Suspect]
     Active Substance: BUDESONIDE\FORMOTEROL FUMARATE DIHYDRATE
     Dosage: UNKNOWN UNKNOWN
     Route: 055
  2. SINGULAIR [Suspect]
     Active Substance: MONTELUKAST SODIUM
  3. ALBUTEROL [Suspect]
     Active Substance: ALBUTEROL
  4. AROMASIN [Concomitant]
     Active Substance: EXEMESTANE

REACTIONS (4)
  - Candida infection [Unknown]
  - Pharyngeal erythema [Unknown]
  - Dysphonia [Unknown]
  - Fatigue [Unknown]
